FAERS Safety Report 16777527 (Version 5)
Quarter: 2019Q4

REPORT INFORMATION
  Report Type: Report from Study
  Country: CN (occurrence: CN)
  Receive Date: 20190905
  Receipt Date: 20191115
  Transmission Date: 20200122
  Serious: Yes (Hospitalization)
  Sender: FDA-Public Use
  Company Number: CN-GILEAD-2019-0425539

PATIENT
  Age: 52 Year
  Sex: Male
  Weight: 70 kg

DRUGS (22)
  1. COENZYME [Concomitant]
     Active Substance: UBIDECARENONE
  2. TRAMADOL HYDROCHLORIDE. [Concomitant]
     Active Substance: TRAMADOL HYDROCHLORIDE
  3. PLATELETS [Concomitant]
     Active Substance: HUMAN PLATELET, ALLOGENIC
     Indication: THROMBOCYTOPENIA
     Route: 048
     Dates: start: 20190601
  4. SHU GAN NING ZHU SHE YE [Concomitant]
  5. GLUCOSE [Concomitant]
     Active Substance: DEXTROSE
  6. HUMAN ALBUMIN [Concomitant]
     Active Substance: ALBUMIN HUMAN
  7. TERLIPRESSIN [Concomitant]
     Active Substance: TERLIPRESSIN
  8. LIDOCAINE HYDROCHLORIDE. [Concomitant]
     Active Substance: LIDOCAINE HYDROCHLORIDE
  9. SPIRONOLACTONE. [Concomitant]
     Active Substance: SPIRONOLACTONE
  10. CEFTIZOXIME SODIUM [Concomitant]
     Active Substance: CEFTIZOXIME SODIUM
  11. RIFAMPICIN [Concomitant]
     Active Substance: RIFAMPIN
  12. FLURBIPROFEN [FLURBIPROFEN SODIUM] [Concomitant]
  13. MAGNESIUM GLYCINATE [Concomitant]
     Active Substance: MAGNESIUM GLYCINATE
  14. OMEPRAZOLE SODIUM [Concomitant]
     Active Substance: OMEPRAZOLE SODIUM
  15. SOFOSBUVIR W/VELPATASVIR [Suspect]
     Active Substance: SOFOSBUVIR\VELPATASVIR
     Indication: CHRONIC HEPATITIS C
     Dosage: 1 DOSAGE FORM, QD
     Route: 048
     Dates: start: 20190602, end: 20190902
  16. POTASSIUM CHLORIDE. [Concomitant]
     Active Substance: POTASSIUM CHLORIDE
  17. ISONIAZID. [Concomitant]
     Active Substance: ISONIAZID
  18. ETHAMBUTOL [Concomitant]
     Active Substance: ETHAMBUTOL HYDROCHLORIDE
  19. AMINOCAPROIC ACID. [Concomitant]
     Active Substance: AMINOCAPROIC ACID
  20. INSULIN [Concomitant]
     Active Substance: INSULIN NOS
  21. IBUPROFEN. [Concomitant]
     Active Substance: IBUPROFEN
  22. SODIUM CHLORIDE. [Concomitant]
     Active Substance: SODIUM CHLORIDE

REACTIONS (10)
  - Abdominal pain [Recovering/Resolving]
  - Rhinorrhoea [Recovered/Resolved]
  - Abdominal pain upper [Recovered/Resolved]
  - Cough [Recovered/Resolved]
  - Asthenia [Recovered/Resolved]
  - Dizziness [Recovered/Resolved]
  - Chest discomfort [Recovered/Resolved]
  - Chest pain [Recovered/Resolved]
  - Cough [Recovered/Resolved]
  - Decreased appetite [Recovered/Resolved]

NARRATIVE: CASE EVENT DATE: 20190819
